FAERS Safety Report 5870858-8 (Version None)
Quarter: 2008Q3

REPORT INFORMATION
  Report Type: 
  Country: None (occurrence: None)
  Receive Date: 20080904
  Receipt Date: 20080826
  Transmission Date: 20090109
  Serious: Yes (Other)
  Sender: FDA-Public Use
  Company Number: SE-TYCO HEALTHCARE/MALLINCKRODT-T200801407

PATIENT

DRUGS (12)
  1. ULTRA-TECHNEKOW FM [Suspect]
     Indication: DRUG USE FOR UNKNOWN INDICATION
     Dosage: UNK, SINGLE
     Dates: start: 20080715, end: 20080715
  2. ULTRA-TECHNEKOW FM [Suspect]
     Dosage: UNK, SINGLE
     Dates: start: 20080721, end: 20080721
  3. MYOVIEW                            /01238501/ [Suspect]
     Indication: DRUG USE FOR UNKNOWN INDICATION
     Dosage: 230 UG, SINGLE
     Route: 042
     Dates: start: 20080715, end: 20080715
  4. MYOVIEW                            /01238501/ [Suspect]
     Dosage: 230 UG, SINGLE
     Route: 042
     Dates: start: 20080721, end: 20080721
  5. BUDENOFALK [Concomitant]
  6. OMEPRAZOL                          /00661201/ [Concomitant]
  7. ALVEDON [Concomitant]
  8. ENALAPRIL MALEATE [Concomitant]
  9. SELOKEN                            /00376902/ [Concomitant]
  10. SIMVASTATIN [Concomitant]
  11. GLUKOSAMIN [Concomitant]
  12. SPIRIVA [Concomitant]

REACTIONS (1)
  - ERYTHEMA MULTIFORME [None]
